FAERS Safety Report 8436667-0 (Version None)
Quarter: 2012Q2

REPORT INFORMATION
  Report Type: 
  Country: None (occurrence: None)
  Receive Date: 20120614
  Receipt Date: 20120605
  Transmission Date: 20120825
  Serious: Yes (Other)
  Sender: FDA-Public Use
  Company Number: CH-JNJFOC-20120603419

PATIENT
  Sex: Female

DRUGS (1)
  1. REMICADE [Suspect]
     Indication: CROHN'S DISEASE
     Dosage: ON INFLIXIMAB SINCE 3.5 YEARS
     Route: 042

REACTIONS (3)
  - PANIC DISORDER [None]
  - DYSPNOEA [None]
  - RESPIRATORY DISTRESS [None]
